FAERS Safety Report 20076229 (Version 1)
Quarter: 2021Q4

REPORT INFORMATION
  Report Type: Spontaneous
  Country: US (occurrence: US)
  Receive Date: 20211116
  Receipt Date: 20211116
  Transmission Date: 20220303
  Serious: No
  Sender: FDA-Public Use
  Company Number: US-NOVOPROD-831590

PATIENT
  Sex: Female

DRUGS (2)
  1. TRESIBA [Suspect]
     Active Substance: INSULIN DEGLUDEC
     Indication: Type 2 diabetes mellitus
     Dosage: 40 QD
     Route: 058
  2. KEPPRA [Concomitant]
     Active Substance: LEVETIRACETAM
     Indication: Product used for unknown indication
     Dosage: 125 MG, QD
     Route: 048

REACTIONS (11)
  - Myoclonus [Not Recovered/Not Resolved]
  - Tremor [Not Recovered/Not Resolved]
  - Fall [Not Recovered/Not Resolved]
  - Disturbance in attention [Not Recovered/Not Resolved]
  - Balance disorder [Not Recovered/Not Resolved]
  - Mood altered [Unknown]
  - Gait disturbance [Unknown]
  - Impaired driving ability [Unknown]
  - Psychomotor skills impaired [Unknown]
  - Dyskinesia [Unknown]
  - Confusional state [Unknown]

NARRATIVE: CASE EVENT DATE: 20200101
